FAERS Safety Report 5222415-4 (Version None)
Quarter: 2007Q1

REPORT INFORMATION
  Report Type: 
  Country: None (occurrence: None)
  Receive Date: 20070129
  Receipt Date: 20060925
  Transmission Date: 20070707
  Serious: No
  Sender: FDA-Public Use
  Company Number: US-BRISTOL-MYERS SQUIBB COMPANY-13520838

PATIENT
  Age: 64 Year
  Sex: Female
  Weight: 57 kg

DRUGS (2)
  1. TRAZODONE HCL [Suspect]
     Dates: start: 20060901
  2. GRAPEFRUIT JUICE [Concomitant]

REACTIONS (7)
  - BALANCE DISORDER [None]
  - DIZZINESS [None]
  - MUSCLE TWITCHING [None]
  - NAUSEA [None]
  - PARAESTHESIA [None]
  - TINNITUS [None]
  - VISION BLURRED [None]
